FAERS Safety Report 5994202-0 (Version None)
Quarter: 2008Q4

REPORT INFORMATION
  Report Type: 
  Country: None (occurrence: None)
  Receive Date: 20081212
  Receipt Date: 20080903
  Transmission Date: 20090506
  Serious: No
  Sender: FDA-Public Use
  Company Number: US-ABBOTT-08P-163-0474079-00

PATIENT
  Sex: Female
  Weight: 86.26 kg

DRUGS (14)
  1. HUMIRA [Suspect]
     Indication: PSORIASIS
     Route: 058
     Dates: start: 20080601
  2. LEVOTHYROXINE SODIUM [Concomitant]
     Indication: HYPOTHYROIDISM
  3. METFORMIN HCL [Concomitant]
     Indication: BLOOD GLUCOSE INCREASED
  4. FOSAVANCE [Concomitant]
     Indication: OSTEOPOROSIS
  5. ESOMEPRAZOLE MAGNESIUM [Concomitant]
     Indication: GASTROOESOPHAGEAL REFLUX DISEASE
  6. FLUOXETINE [Concomitant]
     Indication: PSORIASIS
  7. METOPROLOL [Concomitant]
     Indication: HYPERTENSION
  8. SIMVASTATIN [Concomitant]
     Indication: BLOOD CHOLESTEROL INCREASED
  9. ACETYLSALICYLIC ACID SRT [Concomitant]
     Indication: CARDIAC DISORDER
  10. MULTI-VITAMIN [Concomitant]
     Indication: DRUG USE FOR UNKNOWN INDICATION
  11. CALCIUM [Concomitant]
     Indication: OSTEOPOROSIS
  12. COTYLENOL [Concomitant]
     Indication: PAIN IN EXTREMITY
  13. MAGNESIUM SULFATE [Concomitant]
     Indication: FOOD CRAVING
  14. JOINT SUPPORT SUPPLEMENTS [Concomitant]
     Indication: DRUG USE FOR UNKNOWN INDICATION

REACTIONS (3)
  - MYALGIA [None]
  - RASH [None]
  - WEIGHT INCREASED [None]
